FAERS Safety Report 8917972 (Version 2)
Quarter: 2014Q2

REPORT INFORMATION
  Report Type: Report from Study
  Country: US (occurrence: US)
  Receive Date: 20121120
  Receipt Date: 20130810
  Transmission Date: 20141212
  Serious: Yes (Other)
  Sender: FDA-Public Use
  Company Number: US-BAXTER-2012BAX024428

PATIENT
  Sex: 0

DRUGS (7)
  1. CYCLOPHOSPHAMIDE FOR INJECTION, USP [Suspect]
     Indication: MANTLE CELL LYMPHOMA
     Route: 042
  2. RITUXIMAB [Suspect]
     Indication: MANTLE CELL LYMPHOMA
     Route: 042
  3. VINCRISTINE [Suspect]
     Indication: MANTLE CELL LYMPHOMA
     Route: 042
  4. DOXORUBICIN [Suspect]
     Indication: MANTLE CELL LYMPHOMA
     Route: 042
  5. PREDNISONE [Suspect]
     Indication: MANTLE CELL LYMPHOMA
     Route: 048
  6. ACETAMINOPHEN [Concomitant]
     Indication: PREMEDICATION
  7. DIPHENHYDRAMINE [Concomitant]
     Indication: PREMEDICATION

REACTIONS (1)
  - Hyperuricaemia [Unknown]
